FAERS Safety Report 7487427-9 (Version None)
Quarter: 2011Q2

REPORT INFORMATION
  Report Type: 
  Country: None (occurrence: None)
  Receive Date: 20110518
  Receipt Date: 20110513
  Transmission Date: 20111010
  Serious: Yes (Other)
  Sender: FDA-Public Use
  Company Number: US-AMGEN-USASP2011023663

PATIENT
  Age: 88 Year
  Sex: Male

DRUGS (2)
  1. PROCRIT [Concomitant]
  2. NPLATE [Suspect]
     Indication: IDIOPATHIC THROMBOCYTOPENIC PURPURA
     Dosage: UNK
     Dates: start: 20110112

REACTIONS (2)
  - NON-HODGKIN'S LYMPHOMA [None]
  - CHRONIC MYELOMONOCYTIC LEUKAEMIA [None]
